FAERS Safety Report 6685037-4 (Version None)
Quarter: 2010Q2

REPORT INFORMATION
  Report Type: 
  Country: None (occurrence: None)
  Receive Date: 20100416
  Receipt Date: 20100412
  Transmission Date: 20101027
  Serious: Yes (Hospitalization)
  Sender: FDA-Public Use
  Company Number: A0790581A

PATIENT
  Age: 71 Year
  Sex: Male
  Weight: 109.5 kg

DRUGS (1)
  1. AVANDIA [Suspect]
     Dosage: 4MG PER DAY
     Route: 048
     Dates: start: 20061031, end: 20080903

REACTIONS (1)
  - CEREBROVASCULAR ACCIDENT [None]
